FAERS Safety Report 5338810-9 (Version None)
Quarter: 2007Q2

REPORT INFORMATION
  Report Type: 
  Country: None (occurrence: None)
  Receive Date: 20070328
  Receipt Date: 20061201
  Transmission Date: 20071010
  Serious: Yes (Other)
  Sender: FDA-Public Use
  Company Number: K200601555

PATIENT
  Age: 59 Year
  Sex: Female
  Weight: 66.7 kg

DRUGS (5)
  1. ALTACE [Suspect]
     Dosage: SEE IMAGE
     Dates: end: 20061101
  2. ALTACE [Suspect]
     Dosage: SEE IMAGE
     Dates: start: 20061101
  3. TOPAMAX [Suspect]
     Indication: CONVULSION
     Dosage: 100 MG, BID, ORAL
     Route: 048
     Dates: start: 20061018
  4. PROZAC [Concomitant]
  5. SYNTHROID [Concomitant]

REACTIONS (1)
  - BLOOD PRESSURE DECREASED [None]
